FAERS Safety Report 11760348 (Version 3)
Quarter: 2015Q4

REPORT INFORMATION
  Report Type: Spontaneous
  Country: ES (occurrence: ES)
  Receive Date: 20151120
  Receipt Date: 20151222
  Transmission Date: 20160304
  Serious: Yes (Other)
  Sender: FDA-Public Use
  Company Number: ES-AMGEN-ESPSP2015122843

PATIENT
  Age: 50 Year
  Sex: Female
  Weight: 78 kg

DRUGS (9)
  1. NATECAL D [Concomitant]
     Active Substance: CALCIUM CARBONATE\CHOLECALCIFEROL
     Indication: BLOOD CALCIUM
     Dosage: 1 DF, 1X/DAY (ONE TABLET EVERY 24 HOURS)
  2. CEMIDON [Concomitant]
     Active Substance: ISONIAZID
     Indication: TUBERCULIN TEST POSITIVE
     Dosage: 300 MG, 1X/DAY (ONE TABLET OF 300 MG EVERY 24 HOURS)
  3. METFORMIN [Concomitant]
     Active Substance: METFORMIN HYDROCHLORIDE
     Indication: DIABETES MELLITUS
     Dosage: 1 DF, 1X/DAY (ONE TABLET EVERY 24 HOURS)
  4. LOPID [Concomitant]
     Active Substance: GEMFIBROZIL
     Indication: HYPERCHOLESTEROLAEMIA
     Dosage: 600 MG, 1X/DAY (ONE TABLET OF 600 MG EVERY 24 HOURS)
  5. ATORVASTATIN [Concomitant]
     Active Substance: ATORVASTATIN
     Indication: HYPERCHOLESTEROLAEMIA
     Dosage: 1 DF, 1X/DAY (ONE TABLET EVERY 24 HOURS)
  6. PROGYLUTON                         /01258901/ [Concomitant]
     Indication: COMPLEX REGIONAL PAIN SYNDROME
     Dosage: 1 DF, 1X/DAY (ONE TABLET EVERY 24 HOURS)
  7. ENBREL [Suspect]
     Active Substance: ETANERCEPT
     Indication: PSORIATIC ARTHROPATHY
     Dosage: 50 MG, ONCE WEEKLY
     Route: 058
     Dates: start: 20150618
  8. TYROSINE [Concomitant]
     Active Substance: TYROSINE
     Indication: THYROID DISORDER
     Dosage: 1 DF, 1X/DAY (ONE TABLET EVERY 24 HOURS)
  9. PROGYLUTON                         /00346801/ [Concomitant]
     Indication: COMPLEX REGIONAL PAIN SYNDROME
     Dosage: 1 DF, 1X/DAY (ONE TABLET EVERY 24 HOURS)

REACTIONS (2)
  - Tachycardia [Recovered/Resolved]
  - Chest pain [Recovered/Resolved]

NARRATIVE: CASE EVENT DATE: 201511
